FAERS Safety Report 15616556 (Version 2)
Quarter: 2018Q4

REPORT INFORMATION
  Report Type: Report from Study
  Country: MX (occurrence: MX)
  Receive Date: 20181114
  Receipt Date: 20181224
  Transmission Date: 20190205
  Serious: Yes (Hospitalization, Other)
  Sender: FDA-Public Use
  Company Number: PHHY2013MX080003

PATIENT
  Age: 40 Year
  Sex: Male

DRUGS (3)
  1. TEGRETOL [Suspect]
     Active Substance: CARBAMAZEPINE
     Indication: EPILEPSY
     Dosage: 2 DF, QD
     Route: 048
  2. TEGRETOL [Suspect]
     Active Substance: CARBAMAZEPINE
     Indication: EPILEPSY
     Dosage: 200 MG, UNK
     Route: 065
  3. TEGRETOL [Suspect]
     Active Substance: CARBAMAZEPINE
     Dosage: 2 DF, QD
     Route: 048

REACTIONS (11)
  - Vein rupture [Recovered/Resolved]
  - Epilepsy [Recovered/Resolved]
  - Cardiovascular insufficiency [Recovered/Resolved]
  - Pharyngeal oedema [Not Recovered/Not Resolved]
  - Drug ineffective [Recovered/Resolved]
  - Urinary incontinence [Unknown]
  - Influenza [Not Recovered/Not Resolved]
  - Speech disorder [Not Recovered/Not Resolved]
  - Seizure [Unknown]
  - Loss of consciousness [Unknown]
  - Product availability issue [Unknown]

NARRATIVE: CASE EVENT DATE: 201307
